FAERS Safety Report 8206171-3 (Version None)
Quarter: 2012Q1

REPORT INFORMATION
  Report Type: 
  Country: None (occurrence: None)
  Receive Date: 20120313
  Receipt Date: 20120305
  Transmission Date: 20120608
  Serious: Yes (Death)
  Sender: FDA-Public Use
  Company Number: DE-ROCHE-1033150

PATIENT
  Age: 80 Year
  Sex: Female
  Weight: 66 kg

DRUGS (13)
  1. RANITIDINE [Concomitant]
     Indication: PROPHYLAXIS
     Route: 042
  2. GRANISETRON HYDROCHLORIDE [Concomitant]
     Indication: NAUSEA
     Route: 042
     Dates: start: 20110131, end: 20110408
  3. ACETAMINOPHEN [Concomitant]
     Indication: PROPHYLAXIS
     Route: 048
  4. PREDNISOLONE [Concomitant]
     Indication: PROPHYLAXIS
     Route: 048
  5. TORSEMIDE [Concomitant]
     Indication: PROPHYLAXIS
     Route: 048
  6. GAMUNEX [Concomitant]
     Route: 042
  7. MABTHERA [Suspect]
     Indication: CHRONIC LYMPHOCYTIC LEUKAEMIA
     Route: 042
     Dates: start: 20110131, end: 20110408
  8. FLUDARABINE PHOSPHATE [Suspect]
     Indication: CHRONIC LYMPHOCYTIC LEUKAEMIA
     Route: 042
     Dates: start: 20110131, end: 20110408
  9. VERGENTAN [Concomitant]
     Indication: NAUSEA
     Route: 048
     Dates: start: 20110131, end: 20110408
  10. PREDNISOLONE [Concomitant]
     Indication: BRONCHITIS CHRONIC
     Route: 048
  11. CLEMASTINE FUMARATE [Concomitant]
     Indication: PROPHYLAXIS
     Route: 042
  12. CLARITHROMYCIN [Concomitant]
     Route: 048
  13. PANTOPRAZOLE [Concomitant]
     Indication: PROPHYLAXIS
     Route: 048

REACTIONS (1)
  - DEATH [None]
